FAERS Safety Report 8532179-4 (Version None)
Quarter: 2012Q3

REPORT INFORMATION
  Report Type: 
  Country: None (occurrence: None)
  Receive Date: 20120723
  Receipt Date: 20120718
  Transmission Date: 20120928
  Serious: Yes (Hospitalization)
  Sender: FDA-Public Use
  Company Number: JP-GLAXOSMITHKLINE-B0816035A

PATIENT
  Sex: Male

DRUGS (1)
  1. FLUTICASONE FUROATE [Suspect]
     Indication: RHINITIS ALLERGIC
     Route: 045

REACTIONS (3)
  - NASAL SEPTUM DEVIATION [None]
  - NASAL SEPTUM PERFORATION [None]
  - RHINORRHOEA [None]
